FAERS Safety Report 5762664-X (Version None)
Quarter: 2008Q2

REPORT INFORMATION
  Report Type: 
  Country: None (occurrence: None)
  Receive Date: 20080527
  Receipt Date: 20080402
  Transmission Date: 20081010
  Serious: Yes (Hospitalization, Other)
  Sender: FDA-Public Use
  Company Number: 46826

PATIENT
  Sex: Male

DRUGS (1)
  1. FOSPHENYTOIN SODIUM [Suspect]
     Indication: CONVULSION
     Dates: start: 20000929

REACTIONS (2)
  - STEVENS-JOHNSON SYNDROME [None]
  - TOXIC EPIDERMAL NECROLYSIS [None]
